FAERS Safety Report 9084262 (Version 1)
Quarter: 2013Q1

REPORT INFORMATION
  Report Type: Report from Study
  Country: US (occurrence: US)
  Receive Date: 20130131
  Receipt Date: 20130131
  Transmission Date: 20140127
  Serious: No
  Sender: FDA-Public Use
  Company Number: US-ABBOTT-12P-163-0986448-00

PATIENT
  Age: 49 Year
  Sex: Female

DRUGS (7)
  1. HUMIRA [Suspect]
     Indication: CROHN^S DISEASE
     Dates: start: 201207
  2. ASACOL [Concomitant]
     Indication: CROHN^S DISEASE
     Dosage: 400MG DAILY
  3. LOMOTIL [Concomitant]
     Indication: DIARRHOEA
     Dosage: 2-3 TABS EVERY 4-6 HOURS AS NEEDED
  4. MIRAPEX [Concomitant]
     Indication: RESTLESS LEGS SYNDROME
     Dosage: 0.125MG 6 TABS AT BEDTIME EVERY OTHER NIGHT, ALERNATES WITH REQUIP
  5. REQUIP [Concomitant]
     Indication: RESTLESS LEGS SYNDROME
     Dosage: 4MG 2 TABS AT NIGHT
  6. LEXAPRO [Concomitant]
     Indication: DEPRESSION
  7. XANAX [Concomitant]
     Indication: ANXIETY

REACTIONS (1)
  - Drug ineffective [Not Recovered/Not Resolved]
